FAERS Safety Report 24647404 (Version 1)
Quarter: 2024Q4

REPORT INFORMATION
  Report Type: Spontaneous
  Country: US (occurrence: US)
  Receive Date: 20241121
  Receipt Date: 20241121
  Transmission Date: 20250115
  Serious: Yes (Other)
  Sender: COOPERSURGICAL
  Company Number: US-COOPERSURGICAL, INC.-2024CPS003588

PATIENT
  Age: 24 Year
  Sex: Female
  Weight: 149.66 kg

DRUGS (1)
  1. PARAGARD T 380A [Suspect]
     Active Substance: COPPER
     Indication: Contraception
     Dosage: UNK
     Route: 015
     Dates: start: 20130130, end: 20190314

REACTIONS (16)
  - Abortion induced [Recovered/Resolved]
  - Cervical dysplasia [Unknown]
  - Female sterilisation [Unknown]
  - Device breakage [Recovered/Resolved]
  - Foreign body in reproductive tract [Recovered/Resolved]
  - Complication of device removal [Recovered/Resolved]
  - Embedded device [Recovered/Resolved]
  - Pregnancy with contraceptive device [Recovered/Resolved]
  - Drug ineffective [Unknown]
  - Anxiety [Not Recovered/Not Resolved]
  - Depression [Not Recovered/Not Resolved]
  - Sinusitis [Unknown]
  - Emotional disorder [Unknown]
  - Obesity [Not Recovered/Not Resolved]
  - Rash [Unknown]
  - Dyspareunia [Recovered/Resolved]

NARRATIVE: CASE EVENT DATE: 20130130
